FAERS Safety Report 7248133-9 (Version None)
Quarter: 2011Q1

REPORT INFORMATION
  Report Type: 
  Country: None (occurrence: None)
  Receive Date: 20110127
  Receipt Date: 20110119
  Transmission Date: 20110831
  Serious: Yes (Death, Other)
  Sender: FDA-Public Use
  Company Number: US-BAXTER-2011BH001307

PATIENT
  Age: 78 Year
  Sex: Male

DRUGS (2)
  1. DIANEAL [Suspect]
     Indication: PERITONEAL DIALYSIS
     Route: 033
     Dates: start: 20060101, end: 20110105
  2. ANTIHYPERTENSIVES [Concomitant]
     Indication: HYPERTENSION
     Dates: start: 19910101

REACTIONS (4)
  - CORONARY ARTERY DISEASE [None]
  - HYPERTENSION [None]
  - DEPRESSION [None]
  - RENAL FAILURE CHRONIC [None]
